FAERS Safety Report 25189477 (Version 2)
Quarter: 2025Q2

REPORT INFORMATION
  Report Type: Spontaneous
  Country: CA (occurrence: CA)
  Receive Date: 20250411
  Receipt Date: 20250605
  Transmission Date: 20250716
  Serious: Yes (Other)
  Sender: INSUD PHARMA
  Company Number: US-INSUD PHARMA-2503US02579

PATIENT

DRUGS (1)
  1. DROSPIRENONE [Suspect]
     Active Substance: DROSPIRENONE
     Indication: Endometriosis
     Dosage: 1 DOSAGE FORM, QD
     Route: 048
     Dates: start: 202501, end: 2025

REACTIONS (4)
  - Uterine haemorrhage [Recovered/Resolved]
  - Abnormal menstrual clots [Recovered/Resolved]
  - Intermenstrual bleeding [Recovered/Resolved]
  - Product prescribing issue [Unknown]

NARRATIVE: CASE EVENT DATE: 20250101
